FAERS Safety Report 8377793-4 (Version None)
Quarter: 2012Q2

REPORT INFORMATION
  Report Type: 
  Country: None (occurrence: None)
  Receive Date: 20120522
  Receipt Date: 20120427
  Transmission Date: 20120825
  Serious: Yes (Other)
  Sender: FDA-Public Use
  Company Number: JP-MERCK-1112USA01152

PATIENT
  Age: 82 Year
  Sex: Female

DRUGS (5)
  1. ASPARA K [Concomitant]
     Route: 065
     Dates: start: 20111129
  2. DIAMOX [Concomitant]
     Route: 065
     Dates: start: 20111129
  3. MANNITOL [Concomitant]
     Route: 042
  4. COSOPT [Concomitant]
     Route: 047
     Dates: start: 20111129, end: 20111207
  5. TAFLUPROST [Suspect]
     Indication: GLAUCOMA
     Route: 047
     Dates: start: 20111130, end: 20111130

REACTIONS (1)
  - ANAPHYLACTIC SHOCK [None]
